FAERS Safety Report 4752104-1 (Version None)
Quarter: 2005Q3

REPORT INFORMATION
  Report Type: 
  Country: None (occurrence: None)
  Receive Date: 20050825
  Receipt Date: 20050726
  Transmission Date: 20060218
  Serious: Yes (Hospitalization)
  Sender: FDA-Public Use
  Company Number: 2005AP04266

PATIENT
  Age: 11276 Day
  Sex: Female
  Weight: 61 kg

DRUGS (1)
  1. LIGNOCAINE [Suspect]
     Indication: MIGRAINE
     Dosage: INITIAL LOADING DOSE ONLY
     Dates: start: 20050329, end: 20050329

REACTIONS (1)
  - HYPERSENSITIVITY [None]
